FAERS Safety Report 20653921 (Version 1)
Quarter: 2022Q1

REPORT INFORMATION
  Report Type: Report from Study
  Country: SE (occurrence: SE)
  Receive Date: 20220330
  Receipt Date: 20220330
  Transmission Date: 20220423
  Serious: Yes (Hospitalization)
  Sender: FDA-Public Use
  Company Number: SE-SAKK-2018SA221216AA

PATIENT
  Age: 68 Year
  Sex: Male
  Weight: 91 kg

DRUGS (23)
  1. ISATUXIMAB [Suspect]
     Active Substance: ISATUXIMAB
     Indication: Plasma cell myeloma
     Dosage: 10 MG/KG, QW
     Route: 042
     Dates: start: 20180726, end: 20180726
  2. ISATUXIMAB [Suspect]
     Active Substance: ISATUXIMAB
     Dosage: 10 MG/KG, QW
     Route: 042
     Dates: start: 20171207, end: 20171207
  3. POMALIDOMIDE [Suspect]
     Active Substance: POMALIDOMIDE
     Indication: Plasma cell myeloma
     Dosage: 4 MG, QD
     Route: 048
     Dates: start: 20180726, end: 20180726
  4. POMALIDOMIDE [Suspect]
     Active Substance: POMALIDOMIDE
     Dosage: 4 MG, QD
     Route: 048
     Dates: start: 20171207, end: 20171207
  5. DEXAMETHASONE [Suspect]
     Active Substance: DEXAMETHASONE
     Indication: Plasma cell myeloma
     Dosage: 20 MG, QD
     Route: 048
     Dates: start: 20180802, end: 20180802
  6. DEXAMETHASONE [Suspect]
     Active Substance: DEXAMETHASONE
     Dosage: 20 MG, QD
     Route: 048
     Dates: start: 20171207, end: 20171207
  7. ACETAMINOPHEN [Concomitant]
     Active Substance: ACETAMINOPHEN
     Indication: Prophylaxis
     Dosage: UNK
     Route: 048
     Dates: start: 20160704
  8. ACETAMINOPHEN [Concomitant]
     Active Substance: ACETAMINOPHEN
     Dosage: TOTAL DAILY DOSE: 1000 MG
     Route: 048
     Dates: start: 20180726, end: 20180726
  9. RANITIDINE [Concomitant]
     Active Substance: RANITIDINE
     Indication: Prophylaxis
     Dosage: TOTAL DAILY DOSE: 50 MG
     Route: 042
     Dates: start: 20180726, end: 20180726
  10. CLEMASTINE FUMARATE [Concomitant]
     Active Substance: CLEMASTINE FUMARATE
     Indication: Prophylaxis
     Dosage: TOTAL DAILY DOSE: 2 MG
     Route: 048
     Dates: start: 20180726, end: 20180726
  11. DENTAL [Concomitant]
     Indication: Prophylaxis
     Dosage: UNK UNK, UNK
     Route: 048
     Dates: start: 20171114
  12. OMEPRAZOLE [Concomitant]
     Active Substance: OMEPRAZOLE
     Indication: Drug therapy
     Dosage: UNK UNK, UNK
     Route: 048
     Dates: start: 20160610
  13. XARELTO [Concomitant]
     Active Substance: RIVAROXABAN
     Indication: Drug therapy
     Dosage: UNK UNK, UNK
     Route: 048
     Dates: start: 20170620
  14. BISOPROLOL [Concomitant]
     Active Substance: BISOPROLOL
     Indication: Drug therapy
     Dosage: UNK UNK, UNK
     Route: 048
     Dates: start: 20100614
  15. ACYCLOVIR [Concomitant]
     Active Substance: ACYCLOVIR
     Indication: Prophylaxis
     Dosage: UNK UNK, UNK
     Route: 048
     Dates: start: 20160902
  16. DOLCONTIN [MORPHINE SULFATE] [Concomitant]
     Indication: Drug therapy
     Dosage: UNK UNK, UNK
     Route: 048
     Dates: start: 20160707
  17. MORPHINE SULFATE [Concomitant]
     Active Substance: MORPHINE SULFATE
     Indication: Drug therapy
     Dosage: UNK UNK, UNK
     Route: 048
     Dates: start: 20160719
  18. BRICANYL [Concomitant]
     Active Substance: TERBUTALINE SULFATE
     Indication: Prophylaxis
     Dosage: UNK UNK, UNK
     Route: 055
     Dates: start: 20171114
  19. INSULIN PORK\INSULIN PURIFIED PORK [Concomitant]
     Active Substance: INSULIN PORK\INSULIN PURIFIED PORK
     Indication: Drug therapy
     Dosage: UNK UNK, UNK
     Route: 058
     Dates: start: 20180206
  20. NOVORAPID [Concomitant]
     Active Substance: INSULIN ASPART
     Indication: Drug therapy
     Dosage: UNK UNK, UNK
     Route: 058
     Dates: start: 20180213
  21. CEFOTAXIME [Concomitant]
     Active Substance: CEFOTAXIME SODIUM
     Indication: Drug therapy
     Dosage: UNK UNK, UNK
     Route: 042
     Dates: start: 20180214
  22. ZOMETA [Concomitant]
     Active Substance: ZOLEDRONIC ACID
     Indication: Prophylaxis
     Dosage: UNK UNK, UNK
     Route: 042
     Dates: start: 20160629
  23. KLORAMFENIKOL [CHLORAMPHENICOL] [Concomitant]
     Indication: Drug therapy
     Dosage: UNK UNK, UNK
     Route: 047
     Dates: start: 20180612

REACTIONS (1)
  - Pneumocystis jirovecii pneumonia [Recovered/Resolved]

NARRATIVE: CASE EVENT DATE: 20180804
